FAERS Safety Report 17080354 (Version 1)
Quarter: 2019Q4

REPORT INFORMATION
  Report Type: Spontaneous
  Country: US (occurrence: US)
  Receive Date: 20191127
  Receipt Date: 20191127
  Transmission Date: 20200122
  Serious: Yes (Other)
  Sender: FDA-Public Use
  Company Number: US-LUPIN PHARMACEUTICALS INC.-2019-07381

PATIENT
  Age: 36 Year
  Sex: Female
  Weight: 61.23 kg

DRUGS (2)
  1. ESCITALOPRAM [Suspect]
     Active Substance: ESCITALOPRAM OXALATE
     Dosage: UNK
     Route: 065
     Dates: start: 20170707
  2. ESCITALOPRAM [Suspect]
     Active Substance: ESCITALOPRAM OXALATE
     Indication: ADJUSTMENT DISORDER WITH MIXED ANXIETY AND DEPRESSED MOOD
     Dosage: UNK
     Route: 065
     Dates: start: 20170214, end: 20170328

REACTIONS (2)
  - Female orgasmic disorder [Recovering/Resolving]
  - Female sexual dysfunction [Recovering/Resolving]

NARRATIVE: CASE EVENT DATE: 20170321
